FAERS Safety Report 10204622 (Version 1)
Quarter: 2014Q2

REPORT INFORMATION
  Report Type: Spontaneous
  Country: US (occurrence: None)
  Receive Date: 20140527
  Receipt Date: 20140527
  Transmission Date: 20141212
  Serious: No
  Sender: FDA-Public Use
  Company Number: None

PATIENT
  Age: 31 Year
  Sex: Female

DRUGS (1)
  1. INH [Suspect]
     Indication: TUBERCULIN TEST POSITIVE
     Dates: start: 20120220, end: 20120803

REACTIONS (1)
  - Hepatotoxicity [None]
